FAERS Safety Report 9813907 (Version 1)
Quarter: 2014Q1

REPORT INFORMATION
  Report Type: Spontaneous
  Country: DZ (occurrence: DZ)
  Receive Date: 20140113
  Receipt Date: 20140113
  Transmission Date: 20141002
  Serious: Yes (Hospitalization)
  Sender: FDA-Public Use
  Company Number: DZ-ABBVIE-14P-003-1189330-00

PATIENT
  Age: 35 Year
  Sex: Female
  Weight: 75 kg

DRUGS (4)
  1. ZECLAR [Suspect]
     Indication: ANGINA PECTORIS
     Route: 048
  2. DOLIPRANE [Concomitant]
     Indication: PYREXIA
     Route: 048
  3. DOLIPRANE [Concomitant]
     Indication: ANGINA PECTORIS
  4. HEXASPRAY [Concomitant]
     Indication: ANGINA PECTORIS
     Dosage: UNIT + DAILY DOSE: 1 SPRAY 3 TIMES A DAY
     Route: 048

REACTIONS (2)
  - Haemorrhagic disorder [Recovering/Resolving]
  - Petechiae [Recovering/Resolving]
